FAERS Safety Report 5967888-4 (Version None)
Quarter: 2008Q4

REPORT INFORMATION
  Report Type: 
  Country: None (occurrence: None)
  Receive Date: 20081126
  Receipt Date: 20081117
  Transmission Date: 20090506
  Serious: Yes (Hospitalization)
  Sender: FDA-Public Use
  Company Number: FR-WYE-H06957008

PATIENT
  Sex: Female

DRUGS (5)
  1. CORDARONE [Suspect]
     Indication: ATRIAL FIBRILLATION
     Route: 048
  2. ZANIDIP [Concomitant]
     Indication: HYPERTENSION
     Route: 048
  3. LASIX [Concomitant]
     Indication: HYPERTENSION
     Route: 048
  4. KARDEGIC [Suspect]
     Indication: CENTRAL PAIN SYNDROME
     Route: 048
  5. SINTROM [Suspect]
     Indication: CEREBROVASCULAR ACCIDENT
     Dosage: 1 MG QOD/2 MG QOD
     Route: 048

REACTIONS (2)
  - FALL [None]
  - TRAUMATIC HAEMATOMA [None]
